FAERS Safety Report 5415351-1 (Version None)
Quarter: 2007Q3

REPORT INFORMATION
  Report Type: 
  Country: None (occurrence: None)
  Receive Date: 20070815
  Receipt Date: 20070809
  Transmission Date: 20080115
  Serious: Yes (Hospitalization)
  Sender: FDA-Public Use
  Company Number: FR-AVENTIS-200712561FR

PATIENT
  Age: 76 Year
  Sex: Male

DRUGS (9)
  1. LASILIX                            /00032601/ [Suspect]
     Route: 048
     Dates: end: 20070702
  2. LASILIX                            /00032601/ [Suspect]
     Route: 048
     Dates: start: 20070702
  3. ALDACTONE [Suspect]
     Indication: DRUG USE FOR UNKNOWN INDICATION
     Route: 048
  4. TAREG [Suspect]
     Route: 048
     Dates: end: 20070629
  5. ISOPTIN [Suspect]
     Route: 048
     Dates: end: 20070629
  6. HEMIGOXINE [Suspect]
     Indication: ATRIAL FIBRILLATION
     Route: 048
     Dates: end: 20070701
  7. NEBILOX [Concomitant]
     Indication: DRUG USE FOR UNKNOWN INDICATION
     Route: 048
  8. LEVOTHYROXINE SODIUM [Concomitant]
     Indication: DRUG USE FOR UNKNOWN INDICATION
     Route: 048
  9. CRESTOR [Concomitant]
     Indication: DRUG USE FOR UNKNOWN INDICATION
     Route: 048

REACTIONS (2)
  - HYPERKALAEMIA [None]
  - RENAL FAILURE [None]
